FAERS Safety Report 10084263 (Version 1)
Quarter: 2014Q2

REPORT INFORMATION
  Report Type: Spontaneous
  Country: CN (occurrence: CN)
  Receive Date: 20140417
  Receipt Date: 20140417
  Transmission Date: 20141212
  Serious: Yes (Other)
  Sender: FDA-Public Use
  Company Number: CN-PFIZER INC-2014102824

PATIENT
  Age: 55 Year
  Sex: Male
  Weight: 62.5 kg

DRUGS (1)
  1. CARDURA XL [Suspect]
     Indication: BENIGN PROSTATIC HYPERPLASIA
     Dosage: 4 MG, 1X/DAY
     Route: 048
     Dates: start: 20131016, end: 20131020

REACTIONS (3)
  - Hepatitis [Recovering/Resolving]
  - Abdominal pain [Recovering/Resolving]
  - Drug-induced liver injury [Recovering/Resolving]
